FAERS Safety Report 6765928-6 (Version None)
Quarter: 2010Q2

REPORT INFORMATION
  Report Type: 
  Country: None (occurrence: None)
  Receive Date: 20100611
  Receipt Date: 20100603
  Transmission Date: 20101027
  Serious: Yes (Other)
  Sender: FDA-Public Use
  Company Number: NL-BAYER-201027513GPV

PATIENT

DRUGS (2)
  1. ACETYLSALICYLIC ACID [Suspect]
     Indication: CARDIAC DISORDER
     Route: 065
  2. PLAVIX [Suspect]
     Indication: CARDIAC DISORDER
     Route: 065

REACTIONS (1)
  - DEEP VEIN THROMBOSIS [None]
